FAERS Safety Report 25367208 (Version 2)
Quarter: 2025Q2

REPORT INFORMATION
  Report Type: Spontaneous
  Country: US (occurrence: NL)
  Receive Date: 20250528
  Receipt Date: 20250620
  Transmission Date: 20250716
  Serious: Yes (Hospitalization, Other)
  Sender: RANBAXY
  Company Number: US-MIMS-SUN-2025-USA-54683

PATIENT
  Age: 63 Year
  Sex: Male

DRUGS (7)
  1. BACTRIM [Suspect]
     Active Substance: SULFAMETHOXAZOLE\TRIMETHOPRIM
     Indication: Product used for unknown indication
     Route: 065
     Dates: start: 20230730
  2. BIRTAMIMAB [Suspect]
     Active Substance: BIRTAMIMAB
     Indication: Primary amyloidosis
     Route: 065
     Dates: start: 20230215
  3. BIRTAMIMAB [Suspect]
     Active Substance: BIRTAMIMAB
     Route: 042
     Dates: start: 20250314, end: 20250314
  4. BIRTAMIMAB [Suspect]
     Active Substance: BIRTAMIMAB
     Route: 042
     Dates: start: 20250411, end: 20250411
  5. ALLOPURINOL [Concomitant]
     Active Substance: ALLOPURINOL
     Indication: Product used for unknown indication
     Route: 065
     Dates: start: 20240510
  6. AMITRIPTYLINE [Concomitant]
     Active Substance: AMITRIPTYLINE
     Indication: Product used for unknown indication
     Route: 065
     Dates: start: 20240308
  7. BISOPROLOL [Concomitant]
     Active Substance: BISOPROLOL
     Indication: Product used for unknown indication
     Route: 065
     Dates: start: 202307

REACTIONS (3)
  - Metapneumovirus infection [Recovered/Resolved]
  - Gout [Unknown]
  - Cerebral infarction [Not Recovered/Not Resolved]
